FAERS Safety Report 7652361-8 (Version None)
Quarter: 2011Q3

REPORT INFORMATION
  Report Type: 
  Country: None (occurrence: None)
  Receive Date: 20110803
  Receipt Date: 20080724
  Transmission Date: 20111222
  Serious: Yes (Other)
  Sender: FDA-Public Use
  Company Number: US-BAYER-US-2007-043041

PATIENT
  Age: 35 Year
  Sex: Male
  Weight: 79.365 kg

DRUGS (22)
  1. OPTIMARK [Suspect]
     Indication: PRODUCT USED FOR UNKNOWN INDICATION
  2. BENAZEPRIL HYDROCHLORIDE [Concomitant]
  3. SENSIPAR [Concomitant]
  4. MAGNEVIST [Suspect]
     Indication: NUCLEAR MAGNETIC RESONANCE IMAGING
     Dates: start: 20051129, end: 20051129
  5. MAGNEVIST [Suspect]
     Indication: RENAL MASS
     Dates: start: 20060202, end: 20060202
  6. MULTIHANCE [Suspect]
     Indication: PRODUCT USED FOR UNKNOWN INDICATION
  7. MAGNEVIST [Suspect]
     Indication: NUCLEAR MAGNETIC RESONANCE IMAGING ABDOMINAL
  8. VENOFER [Concomitant]
  9. TUMS [CALCIUM CARBONATE] [Concomitant]
  10. OMNISCAN [Suspect]
     Indication: PRODUCT USED FOR UNKNOWN INDICATION
     Dosage: 14 ML, ONCE
     Dates: start: 20051206, end: 20051206
  11. PROHANCE [Suspect]
     Indication: PRODUCT USED FOR UNKNOWN INDICATION
  12. LASIX [Concomitant]
  13. OMNISCAN [Suspect]
     Dosage: 16 ML, UNK
     Dates: start: 20060201, end: 20060201
  14. EPOGEN [Concomitant]
  15. PROCRIT [Concomitant]
  16. NORVASC [Concomitant]
  17. RENAGEL [Concomitant]
  18. DIATX [Concomitant]
  19. CARDIZEM [Concomitant]
  20. SARNA [Concomitant]
  21. ATENOLOL [Concomitant]
  22. NAPROSYN [Concomitant]

REACTIONS (8)
  - SKIN FIBROSIS [None]
  - ANXIETY [None]
  - ANHEDONIA [None]
  - INJURY [None]
  - PAIN [None]
  - EMOTIONAL DISTRESS [None]
  - NEPHROGENIC SYSTEMIC FIBROSIS [None]
  - FIBROSIS [None]
